FAERS Safety Report 6054741-3 (Version None)
Quarter: 2009Q1

REPORT INFORMATION
  Report Type: 
  Country: None (occurrence: None)
  Receive Date: 20090128
  Receipt Date: 20090119
  Transmission Date: 20090719
  Serious: Yes (Life-Threatening, Hospitalization)
  Sender: FDA-Public Use
  Company Number: DE-AMGEN-US329704

PATIENT
  Sex: Male

DRUGS (3)
  1. ENBREL [Suspect]
     Indication: PSORIASIS
     Dosage: UNKNOWN
     Route: 058
     Dates: start: 20060101, end: 20080101
  2. HUMIRA [Suspect]
     Indication: PSORIASIS
     Dosage: UNKNOWN
     Route: 058
     Dates: start: 20080501, end: 20080901
  3. CORTICOSTEROID NOS [Concomitant]

REACTIONS (4)
  - HEPATOSPLENOMEGALY [None]
  - METASTASIS [None]
  - T-CELL LYMPHOMA [None]
  - TUBERCULOSIS TEST POSITIVE [None]
